FAERS Safety Report 5036192-3 (Version None)
Quarter: 2006Q2

REPORT INFORMATION
  Report Type: 
  Country: None (occurrence: None)
  Receive Date: 20060601
  Receipt Date: 20060228
  Transmission Date: 20061013
  Serious: No
  Sender: FDA-Public Use
  Company Number: US200601003920

PATIENT
  Age: 39 Year
  Sex: Female
  Weight: 72.6 kg

DRUGS (4)
  1. CYMBALTA [Suspect]
     Indication: DEPRESSION
     Dosage: 120 MG, DAILY (1/D)
     Dates: start: 20051001, end: 20060101
  2. DEPAKOTE - SLOW RELEASE (VALPROATE SEMISODIUM) [Concomitant]
  3. RISPERIDAL /SWE/ (RISPERIDONE) [Concomitant]
  4. ESZOPICLONE (ESZOPICLONE) [Concomitant]

REACTIONS (2)
  - DEPRESSION [None]
  - SUICIDAL IDEATION [None]
